FAERS Safety Report 9681924 (Version 1)
Quarter: 2013Q4

REPORT INFORMATION
  Report Type: Spontaneous
  Country: GB (occurrence: GB)
  Receive Date: 20131111
  Receipt Date: 20131111
  Transmission Date: 20140711
  Serious: Yes (Hospitalization)
  Sender: FDA-Public Use
  Company Number: PHHY2013GB125637

PATIENT
  Age: 78 Year
  Sex: Male

DRUGS (2)
  1. METFORMIN [Suspect]
     Dosage: 1 G, BID
  2. GLICLAZIDE [Suspect]
     Dosage: 160 MG, TOTAL

REACTIONS (5)
  - Urinary tract infection [Unknown]
  - Renal failure chronic [Recovering/Resolving]
  - Hypoglycaemia [Recovered/Resolved]
  - Somnolence [Recovered/Resolved]
  - Blood glucose fluctuation [Recovered/Resolved]
